FAERS Safety Report 9935094 (Version 1)
Quarter: 2014Q1

REPORT INFORMATION
  Report Type: Spontaneous
  Country: GB (occurrence: GB)
  Receive Date: 20140228
  Receipt Date: 20140228
  Transmission Date: 20141002
  Serious: Yes (Disabling)
  Sender: FDA-Public Use
  Company Number: GB-PFIZER INC-2014056213

PATIENT
  Age: 79 Year
  Sex: Male
  Weight: 84 kg

DRUGS (12)
  1. PREGABALIN [Suspect]
     Indication: BACK PAIN
     Dosage: 225 MG, 2X/DAY
     Dates: start: 20131024
  2. ALENDRONIC ACID [Concomitant]
     Dosage: UNK
     Dates: start: 20140116, end: 20140213
  3. ALENDRONIC ACID [Concomitant]
     Dosage: UNK
     Dates: start: 20131118, end: 20131216
  4. AMITRIPTYLINE HYDROCHLORIDE [Concomitant]
     Dosage: UNK
     Dates: start: 20131024, end: 20140213
  5. ISPAGHULA HUSK [Concomitant]
     Dosage: UNK
     Dates: start: 20131024, end: 20131123
  6. LANSOPRAZOLE [Concomitant]
     Dosage: UNK
     Dates: start: 20131024
  7. LAXIDO [Concomitant]
     Dosage: UNK
     Dates: start: 20131118, end: 20131216
  8. PARACETAMOL [Concomitant]
     Dosage: UNK
     Dates: start: 20131024, end: 20140213
  9. SERETIDE [Concomitant]
     Dosage: UNK
     Dates: start: 20140116, end: 20140213
  10. SIMVASTATIN [Concomitant]
     Dosage: UNK
     Dates: start: 20131118, end: 20131216
  11. SIMVASTATIN [Concomitant]
     Dosage: UNK
     Dates: start: 20140214
  12. VENTOLIN [Concomitant]
     Dosage: UNK
     Dates: start: 20140214

REACTIONS (2)
  - Raynaud^s phenomenon [Unknown]
  - Cyanosis [Unknown]
